FAERS Safety Report 13563915 (Version 1)
Quarter: 2017Q2

REPORT INFORMATION
  Report Type: Spontaneous
  Country: DE (occurrence: DE)
  Receive Date: 20170519
  Receipt Date: 20170519
  Transmission Date: 20170830
  Serious: Yes (Other)
  Sender: FDA-Public Use
  Company Number: DE-TEVA-767628GER

PATIENT
  Sex: Female

DRUGS (1)
  1. TAMOXIFEN-RATIOPHARM 20 MG TABLETTEN [Suspect]
     Active Substance: TAMOXIFEN
     Route: 048

REACTIONS (2)
  - Blindness [Unknown]
  - Visual impairment [Unknown]
